FAERS Safety Report 9866343 (Version 1)
Quarter: 2014Q1

REPORT INFORMATION
  Report Type: Spontaneous
  Country: US (occurrence: US)
  Receive Date: 20140203
  Receipt Date: 20140203
  Transmission Date: 20141002
  Serious: No
  Sender: FDA-Public Use
  Company Number: US-ALLERGAN-1319035US

PATIENT
  Sex: Female

DRUGS (4)
  1. RESTASIS [Suspect]
     Indication: DRY EYE
     Dosage: UNK
  2. REFRESH NOS [Concomitant]
     Indication: DRY EYE
     Dosage: UNK UNK, QD
     Route: 047
  3. OINTMENT NOS [Concomitant]
     Indication: EYELID DISORDER
     Dosage: UNK UNK, QHS
  4. A LOT OF MEDICATIONS NOS [Concomitant]
     Indication: PRODUCT USED FOR UNKNOWN INDICATION
     Dosage: UNK

REACTIONS (1)
  - Drug ineffective [Unknown]
